FAERS Safety Report 5397909-1 (Version None)
Quarter: 2007Q3

REPORT INFORMATION
  Report Type: 
  Country: None (occurrence: None)
  Receive Date: 20070724
  Receipt Date: 20070717
  Transmission Date: 20080115
  Serious: Yes (Other)
  Sender: FDA-Public Use
  Company Number: 2007BI015191

PATIENT
  Age: 30 Year
  Sex: Female

DRUGS (1)
  1. NATALIZUMAB [Suspect]
     Indication: MULTIPLE SCLEROSIS
     Dosage: 300 MG; WM; IV
     Route: 042
     Dates: start: 20070601, end: 20070701

REACTIONS (8)
  - BACK PAIN [None]
  - CHEST DISCOMFORT [None]
  - DYSGEUSIA [None]
  - FEELING ABNORMAL [None]
  - FLUSHING [None]
  - SYNCOPE [None]
  - URTICARIA [None]
  - VOMITING [None]
